FAERS Safety Report 21368119 (Version 3)
Quarter: 2022Q4

REPORT INFORMATION
  Report Type: Report from Study
  Country: US (occurrence: US)
  Receive Date: 20220923
  Receipt Date: 20221213
  Transmission Date: 20230113
  Serious: Yes (Other)
  Sender: FDA-Public Use
  Company Number: US-ABBVIE-22K-163-4442906-00

PATIENT
  Sex: Male

DRUGS (1)
  1. HUMIRA [Suspect]
     Active Substance: ADALIMUMAB
     Indication: Rheumatoid arthritis
     Dosage: CITRATE FREE
     Route: 058

REACTIONS (8)
  - Cataract [Recovered/Resolved]
  - Rheumatoid arthritis [Recovered/Resolved]
  - Herpes zoster [Unknown]
  - SARS-CoV-2 test positive [Recovered/Resolved]
  - Balance disorder [Recovered/Resolved]
  - Deep vein thrombosis [Unknown]
  - Hip fracture [Unknown]
  - Corneal disorder [Recovered/Resolved]

NARRATIVE: CASE EVENT DATE: 20220101
